FAERS Safety Report 4455663-1 (Version None)
Quarter: 2004Q3

REPORT INFORMATION
  Report Type: 
  Country: None (occurrence: None)
  Receive Date: 20040922
  Receipt Date: 20040823
  Transmission Date: 20050211
  Serious: Yes (Disabling)
  Sender: FDA-Public Use
  Company Number: PHRM2004FR02640

PATIENT
  Age: 14 Year
  Sex: Female

DRUGS (15)
  1. TEGRETOL [Suspect]
     Route: 048
     Dates: start: 19930924, end: 19980107
  2. ENDOXAN [Suspect]
     Route: 065
     Dates: start: 19900721, end: 19900722
  3. SABRIL [Suspect]
     Route: 048
     Dates: start: 19950111, end: 20030604
  4. ALKERAN [Suspect]
     Route: 065
     Dates: start: 19900724, end: 19900724
  5. EPITOMAX [Suspect]
     Route: 048
     Dates: start: 20031231
  6. MYLERAN [Suspect]
     Dosage: 16 INTAKES OF 30 MG/M2
     Route: 065
     Dates: start: 19900717, end: 19900723
  7. VP-16 [Concomitant]
     Route: 065
     Dates: start: 19890901, end: 19900101
  8. ARACYTINE [Concomitant]
     Route: 065
     Dates: start: 19890901, end: 19900101
  9. METHOTREXATE [Concomitant]
     Route: 065
     Dates: start: 19890901, end: 19900101
  10. PURINETHOL [Concomitant]
     Route: 065
     Dates: start: 19890901, end: 19900101
  11. VINCRISTINE [Concomitant]
     Route: 065
     Dates: start: 19890901, end: 19900101
  12. MITOXANTRONE [Concomitant]
     Route: 065
     Dates: start: 19890901, end: 19900101
  13. RIVOTRIL [Concomitant]
     Route: 065
     Dates: start: 19900101, end: 19930101
  14. KANEURON [Concomitant]
     Route: 065
     Dates: start: 19900101, end: 19930101
  15. DEPAKENE [Concomitant]
     Route: 065
     Dates: start: 19900101, end: 19930101

REACTIONS (2)
  - AMENORRHOEA [None]
  - DELAYED PUBERTY [None]
